FAERS Safety Report 9789717 (Version 1)
Quarter: 2013Q4

REPORT INFORMATION
  Report Type: Spontaneous
  Country: GB (occurrence: None)
  Receive Date: 20131227
  Receipt Date: 20131227
  Transmission Date: 20140711
  Serious: Yes (Other)
  Sender: FDA-Public Use
  Company Number: AUR-APL-2013-10686

PATIENT
  Age: 50 Year
  Sex: Male

DRUGS (3)
  1. CLOPIDOGREL [Suspect]
     Indication: PRODUCT USED FOR UNKNOWN INDICATION
  2. ASPIRIN (ACETYLSALICYLIC ACID) [Concomitant]
  3. CILOSTAZOL (CILOSTAZOL) [Concomitant]

REACTIONS (4)
  - Angiopathy [None]
  - Convulsion [None]
  - Amnesia [None]
  - Unevaluable event [None]
